FAERS Safety Report 11301873 (Version 1)
Quarter: 2015Q3

REPORT INFORMATION
  Report Type: Spontaneous
  Country: US (occurrence: US)
  Receive Date: 20150722
  Receipt Date: 20150722
  Transmission Date: 20151125
  Serious: No
  Sender: FDA-Public Use
  Company Number: US-ELI_LILLY_AND_COMPANY-US201002002236

PATIENT
  Sex: Female

DRUGS (2)
  1. EVISTA [Suspect]
     Active Substance: RALOXIFENE HYDROCHLORIDE
     Dosage: 1 D/F, DAILY (1/D)
     Dates: start: 1999
  2. FOSAMAX [Concomitant]
     Active Substance: ALENDRONATE SODIUM

REACTIONS (4)
  - Musculoskeletal discomfort [Recovering/Resolving]
  - Muscle spasms [Unknown]
  - Abdominal pain upper [Unknown]
  - Abdominal pain [Unknown]
